FAERS Safety Report 9268130 (Version 1)
Quarter: 2013Q2

REPORT INFORMATION
  Report Type: Spontaneous
  Country: CA (occurrence: CA)
  Receive Date: 20130502
  Receipt Date: 20130502
  Transmission Date: 20140414
  Serious: Yes (Hospitalization)
  Sender: FDA-Public Use
  Company Number: CA-MYLANLABS-2013S1008915

PATIENT
  Age: 36 Year
  Sex: Female

DRUGS (13)
  1. PEGINTERFERON ALFA-2A [Suspect]
     Indication: HEPATITIS C
     Route: 065
  2. RIBAVIRIN [Suspect]
     Indication: HEPATITIS C
     Route: 065
  3. RIBAVIRIN [Suspect]
     Indication: HEPATITIS CHOLESTATIC
     Route: 065
  4. RIBAVIRIN [Suspect]
     Indication: HEPATITIS C
     Route: 065
  5. RIBAVIRIN [Suspect]
     Indication: HEPATITIS CHOLESTATIC
     Route: 065
  6. PEGINTERFERON ALFA-2B [Suspect]
     Indication: HEPATITIS C
     Route: 065
  7. PEGINTERFERON ALFA-2B [Suspect]
     Indication: HEPATITIS CHOLESTATIC
     Route: 065
  8. PEGINTERFERON ALFA-2B [Suspect]
     Indication: HEPATITIS C
     Dosage: 48MICROG
     Route: 065
  9. PEGINTERFERON ALFA-2B [Suspect]
     Indication: HEPATITIS CHOLESTATIC
     Dosage: 48MICROG
     Route: 065
  10. BOCEPREVIR [Interacting]
     Indication: HEPATITIS CHOLESTATIC
     Route: 065
  11. TACROLIMUS [Interacting]
     Indication: IMMUNOSUPPRESSANT DRUG THERAPY
     Route: 065
  12. TACROLIMUS [Interacting]
     Indication: IMMUNOSUPPRESSANT DRUG THERAPY
     Route: 065
  13. MYCOPHENOLATE MOFETIL [Concomitant]
     Indication: IMMUNOSUPPRESSANT DRUG THERAPY
     Route: 065

REACTIONS (5)
  - Drug ineffective [Unknown]
  - Immunosuppressant drug level increased [Unknown]
  - Drug interaction [Unknown]
  - Anaemia [Recovering/Resolving]
  - Neutropenia [Recovering/Resolving]
